FAERS Safety Report 12631904 (Version 2)
Quarter: 2016Q3

REPORT INFORMATION
  Report Type: Spontaneous
  Country: US (occurrence: US)
  Receive Date: 20160808
  Receipt Date: 20160808
  Transmission Date: 20161109
  Serious: No
  Sender: FDA-Public Use
  Company Number: US-BEH-2016061390

PATIENT
  Age: 77 Year
  Sex: Female
  Weight: 63 kg

DRUGS (22)
  1. LMX [Concomitant]
     Active Substance: LIDOCAINE
  2. DEXILANT [Concomitant]
     Active Substance: DEXLANSOPRAZOLE
  3. ADVAIR HFA [Concomitant]
     Active Substance: FLUTICASONE PROPIONATE\SALMETEROL XINAFOATE
  4. CLONAZEPAM. [Concomitant]
     Active Substance: CLONAZEPAM
  5. MUCINEX [Concomitant]
     Active Substance: GUAIFENESIN
  6. PLAVIX [Concomitant]
     Active Substance: CLOPIDOGREL BISULFATE
  7. ACIPHEX [Concomitant]
     Active Substance: RABEPRAZOLE SODIUM
  8. ZYRTEC [Concomitant]
     Active Substance: CETIRIZINE HYDROCHLORIDE
  9. HIZENTRA [Suspect]
     Active Substance: HUMAN IMMUNOGLOBULIN G
     Indication: IMMUNODEFICIENCY COMMON VARIABLE
     Route: 058
     Dates: start: 20120201
  10. DIPHENHYDRAMINE. [Concomitant]
     Active Substance: DIPHENHYDRAMINE
  11. CYTOTEC [Concomitant]
     Active Substance: MISOPROSTOL
  12. DICYCLOMINE [Concomitant]
     Active Substance: DICYCLOMINE HYDROCHLORIDE
  13. LYRICA [Concomitant]
     Active Substance: PREGABALIN
  14. SEROQUEL [Concomitant]
     Active Substance: QUETIAPINE FUMARATE
  15. RANITIDINE. [Concomitant]
     Active Substance: RANITIDINE
  16. ZYPREXA [Concomitant]
     Active Substance: OLANZAPINE
  17. EPIPEN [Concomitant]
     Active Substance: EPINEPHRINE
  18. AMOXICILLIN. [Concomitant]
     Active Substance: AMOXICILLIN
  19. BUSPAR [Concomitant]
     Active Substance: BUSPIRONE HYDROCHLORIDE
  20. CYMBALTA [Concomitant]
     Active Substance: DULOXETINE HYDROCHLORIDE
  21. SPIRIVA [Concomitant]
     Active Substance: TIOTROPIUM BROMIDE MONOHYDRATE
  22. MULTIVITAMINS [Concomitant]
     Active Substance: VITAMINS

REACTIONS (1)
  - Urinary tract infection [Unknown]

NARRATIVE: CASE EVENT DATE: 201601
